FAERS Safety Report 7250687-3 (Version None)
Quarter: 2011Q1

REPORT INFORMATION
  Report Type: 
  Country: None (occurrence: None)
  Receive Date: 20110128
  Receipt Date: 20110121
  Transmission Date: 20110831
  Serious: Yes (Death)
  Sender: FDA-Public Use
  Company Number: US-JNJFOC-20061100529

PATIENT
  Sex: Female
  Weight: 49.9 kg

DRUGS (10)
  1. RISPERDAL [Suspect]
     Indication: ANXIETY DISORDER
  2. ALBUTEROL [Concomitant]
  3. COUMADIN [Concomitant]
  4. VALIUM [Concomitant]
  5. ARICEPT [Concomitant]
  6. PROTONIX [Concomitant]
  7. PREDNISONE [Concomitant]
     Route: 048
  8. ELAVIL [Concomitant]
  9. LEVOTHYROXINE SODIUM [Concomitant]
  10. FLONASE [Concomitant]
     Route: 045

REACTIONS (1)
  - MYOCARDIAL INFARCTION [None]
